FAERS Safety Report 6981403-8 (Version None)
Quarter: 2010Q3

REPORT INFORMATION
  Report Type: 
  Country: None (occurrence: None)
  Receive Date: 20100914
  Receipt Date: 20100909
  Transmission Date: 20110219
  Serious: Yes (Hospitalization, Other)
  Sender: FDA-Public Use
  Company Number: IT-BRISTOL-MYERS SQUIBB COMPANY-15280076

PATIENT
  Sex: Female

DRUGS (1)
  1. ORENCIA [Suspect]

REACTIONS (1)
  - ANGINA PECTORIS [None]
